FAERS Safety Report 19959292 (Version 1)
Quarter: 2021Q4

REPORT INFORMATION
  Report Type: Spontaneous
  Country: US (occurrence: US)
  Receive Date: 20211014
  Receipt Date: 20211014
  Transmission Date: 20220303
  Serious: Yes (Hospitalization)
  Sender: FDA-Public Use
  Company Number: None

PATIENT
  Age: 66 Year
  Sex: Male
  Weight: 107 kg

DRUGS (1)
  1. APIXABAN [Suspect]
     Active Substance: APIXABAN
     Indication: Atrial fibrillation
     Route: 048
     Dates: start: 20210415, end: 20210822

REACTIONS (7)
  - Haematochezia [None]
  - Packed red blood cell transfusion [None]
  - Haemoglobin decreased [None]
  - Hypotension [None]
  - Tachycardia [None]
  - Procedure aborted [None]
  - Gastritis erosive [None]

NARRATIVE: CASE EVENT DATE: 20210822
